FAERS Safety Report 19417828 (Version 1)
Quarter: 2021Q2

REPORT INFORMATION
  Report Type: Spontaneous
  Country: US (occurrence: US)
  Receive Date: 20210615
  Receipt Date: 20210615
  Transmission Date: 20210717
  Serious: Yes (Other)
  Sender: FDA-Public Use
  Company Number: None

PATIENT
  Age: 37 Year
  Sex: Female
  Weight: 44.1 kg

DRUGS (2)
  1. RETIN?A MICRO [Suspect]
     Active Substance: TRETINOIN
     Indication: ACNE
     Dosage: ?          QUANTITY:1 DROP(S);?
     Route: 061
     Dates: start: 20200718, end: 20200719
  2. RETIN?A MICRO [Suspect]
     Active Substance: TRETINOIN
     Indication: PREMATURE AGEING
     Dosage: ?          QUANTITY:1 DROP(S);?
     Route: 061
     Dates: start: 20200718, end: 20200719

REACTIONS (3)
  - Pyrexia [None]
  - Product quality issue [None]
  - Abdominal pain [None]

NARRATIVE: CASE EVENT DATE: 20200721
